FAERS Safety Report 9798617 (Version 2)
Quarter: 2014Q1

REPORT INFORMATION
  Report Type: Spontaneous
  Country: US (occurrence: US)
  Receive Date: 20140106
  Receipt Date: 20140124
  Transmission Date: 20141002
  Serious: No
  Sender: FDA-Public Use
  Company Number: US-TEVA-453698USA

PATIENT
  Age: 78 Year
  Sex: Female

DRUGS (9)
  1. AZILECT [Suspect]
     Indication: PARKINSON^S DISEASE
     Dosage: 1 MILLIGRAM DAILY;
     Dates: start: 201310
  2. AZILECT [Suspect]
     Dosage: .5 MILLIGRAM DAILY;
     Dates: start: 2013
  3. SINEMET [Concomitant]
     Indication: PARKINSON^S DISEASE
  4. HYDROCHLOROTHIAZIDE [Concomitant]
     Indication: OEDEMA
  5. ENALAPRIL [Concomitant]
     Indication: CARDIAC DISORDER
  6. NEXIUM [Concomitant]
     Indication: GASTROOESOPHAGEAL REFLUX DISEASE
  7. FISH OIL [Concomitant]
     Indication: BLOOD CHOLESTEROL ABNORMAL
  8. LEVOTHYROXINE [Concomitant]
     Indication: HYPOTHYROIDISM
  9. RED YEAST RICE [Concomitant]
     Indication: BLOOD CHOLESTEROL ABNORMAL

REACTIONS (6)
  - Neck pain [Recovered/Resolved]
  - Dysstasia [Recovered/Resolved]
  - Mobility decreased [Recovered/Resolved]
  - Dizziness [Not Recovered/Not Resolved]
  - Tremor [Recovering/Resolving]
  - Muscle strain [Unknown]
